FAERS Safety Report 4480006-7 (Version None)
Quarter: 2004Q4

REPORT INFORMATION
  Report Type: 
  Country: None (occurrence: None)
  Receive Date: 20041018
  Receipt Date: 20040930
  Transmission Date: 20050328
  Serious: Yes (Other)
  Sender: FDA-Public Use
  Company Number: HQWYE779215OCT04

PATIENT
  Age: 36 Year
  Sex: Male

DRUGS (9)
  1. EFFEXOR XR [Suspect]
     Dosage: SEE IMAGE
     Dates: start: 20031103, end: 20031202
  2. EFFEXOR XR [Suspect]
     Dosage: SEE IMAGE
     Dates: start: 20031203, end: 20031214
  3. EFFEXOR XR [Suspect]
     Dosage: SEE IMAGE
     Dates: start: 20031215, end: 20040209
  4. EFFEXOR XR [Suspect]
     Dosage: SEE IMAGE
     Dates: start: 20040318, end: 20040519
  5. EFFEXOR XR [Suspect]
     Dosage: SEE IMAGE
     Dates: start: 20040520, end: 20040617
  6. EFFEXOR XR [Suspect]
     Dosage: SEE IMAGE
     Dates: start: 20040618, end: 20040618
  7. WELLBUTRIN [Concomitant]
  8. VIOXX [Concomitant]
  9. DIPHENHYDRAMINE HCL [Concomitant]

REACTIONS (18)
  - ABDOMINAL DISCOMFORT [None]
  - ANXIETY [None]
  - ASTHENIA [None]
  - BALANCE DISORDER [None]
  - BLOOD PRESSURE DIASTOLIC INCREASED [None]
  - BRAIN SCAN ABNORMAL [None]
  - DISEASE RECURRENCE [None]
  - DRUG WITHDRAWAL SYNDROME [None]
  - EYE MOVEMENT DISORDER [None]
  - FALL [None]
  - HEADACHE [None]
  - HEART RATE INCREASED [None]
  - LOSS OF LIBIDO [None]
  - MUSCLE TWITCHING [None]
  - SYNCOPE [None]
  - TINNITUS [None]
  - TOOTH INJURY [None]
  - TREMOR [None]
